FAERS Safety Report 21230892 (Version 2)
Quarter: 2022Q3

REPORT INFORMATION
  Report Type: Report from Study
  Country: US (occurrence: US)
  Receive Date: 20220819
  Receipt Date: 20220830
  Transmission Date: 20221027
  Serious: Yes (Other)
  Sender: FDA-Public Use
  Company Number: US-TAKEDA-2022TUS051731

PATIENT
  Age: 50 Year
  Sex: Male

DRUGS (3)
  1. HUMAN IMMUNOGLOBULIN G [Suspect]
     Active Substance: HUMAN IMMUNOGLOBULIN G
     Indication: Primary immunodeficiency syndrome
     Dosage: 50 GRAM, MONTHLY
     Route: 042
  2. HUMAN IMMUNOGLOBULIN G [Suspect]
     Active Substance: HUMAN IMMUNOGLOBULIN G
     Indication: Primary immunodeficiency syndrome
     Dosage: 50 GRAM, MONTHLY
     Route: 042
  3. COVID-19 VACCINE NOS [Suspect]
     Active Substance: COVID-19 VACCINE NOS
     Indication: Product used for unknown indication
     Dosage: UNK
     Route: 065

REACTIONS (19)
  - Pulmonary thrombosis [Unknown]
  - Thrombosis [Unknown]
  - Portal hypertension [Unknown]
  - Autoimmune hepatitis [Unknown]
  - Neutropenia [Unknown]
  - Leukopenia [Unknown]
  - Splenectomy [Unknown]
  - Renal pain [Unknown]
  - Urine output decreased [Unknown]
  - Poor venous access [Unknown]
  - Influenza [Unknown]
  - Feeling abnormal [Unknown]
  - Headache [Unknown]
  - Back pain [Unknown]
  - Nausea [Unknown]
  - Immunisation reaction [Unknown]
  - Adrenal adenoma [Unknown]
  - Swelling [Unknown]
  - COVID-19 immunisation [Unknown]
